FAERS Safety Report 14619334 (Version 2)
Quarter: 2018Q1

REPORT INFORMATION
  Report Type: Spontaneous
  Country: US (occurrence: US)
  Receive Date: 20180309
  Receipt Date: 20180321
  Transmission Date: 20180509
  Serious: Yes (Life-Threatening, Hospitalization)
  Sender: FDA-Public Use
  Company Number: US-GLENMARK PHARMACEUTICALS-2018GMK033013

PATIENT
  Age: 15 Year
  Sex: Female

DRUGS (5)
  1. ZONISAMIDE. [Suspect]
     Active Substance: ZONISAMIDE
     Indication: INTENTIONAL SELF-INJURY
  2. ZONISAMIDE. [Suspect]
     Active Substance: ZONISAMIDE
     Indication: AFFECTIVE DISORDER
     Dosage: 7.5 G (150 OF 50 MG TABLETS)
     Route: 048
  3. FLUOXETINE [Concomitant]
     Active Substance: FLUOXETINE HYDROCHLORIDE
     Indication: INTENTIONAL SELF-INJURY
  4. FLUOXETINE [Concomitant]
     Active Substance: FLUOXETINE HYDROCHLORIDE
     Indication: AFFECTIVE DISORDER
     Dosage: UNK
     Route: 048
  5. SALICYLATE SODIUM [Concomitant]
     Active Substance: SODIUM SALICYLATE
     Indication: DYSPEPSIA
     Dosage: UNK, ELIXIR
     Route: 048

REACTIONS (7)
  - Toxicity to various agents [Recovered/Resolved]
  - Acidosis hyperchloraemic [Recovered/Resolved]
  - Electrocardiogram QT prolonged [Recovered/Resolved]
  - Overdose [Recovered/Resolved]
  - Hypotension [Recovered/Resolved]
  - Electrocardiogram T wave amplitude decreased [Recovered/Resolved]
  - Coma [Recovered/Resolved]
